FAERS Safety Report 23685724 (Version 1)
Quarter: 2024Q1

REPORT INFORMATION
  Report Type: Report from Study
  Country: NO (occurrence: NO)
  Receive Date: 20240329
  Receipt Date: 20240329
  Transmission Date: 20240410
  Serious: Yes (Other)
  Sender: FDA-Public Use
  Company Number: NO-BRISTOL-MYERS SQUIBB COMPANY-2024-045716

PATIENT
  Sex: Male

DRUGS (3)
  1. KENACORT [Suspect]
     Active Substance: TRIAMCINOLONE
     Indication: Periarthritis
     Dosage: 10 MG/ML
     Route: 014
  2. BUPIVACAINE HYDROCHLORIDE [Concomitant]
     Active Substance: BUPIVACAINE HYDROCHLORIDE\BUPIVACAINE HYDROCHLORIDE ANHYDROUS
     Indication: Periarthritis
     Dosage: 5MG/ML
  3. ULTRAVIST [Concomitant]
     Active Substance: IOPROMIDE
     Indication: Periarthritis
     Dosage: 300 SCHERING (AG)

REACTIONS (1)
  - Arthritis infective [Recovering/Resolving]
